FAERS Safety Report 7843749-0 (Version None)
Quarter: 2011Q4

REPORT INFORMATION
  Report Type: 
  Country: None (occurrence: None)
  Receive Date: 20111025
  Receipt Date: 20111019
  Transmission Date: 20120403
  Serious: Yes (Hospitalization)
  Sender: FDA-Public Use
  Company Number: FR-ROCHE-1005888

PATIENT
  Age: 67 Year
  Sex: Male

DRUGS (2)
  1. ROCEPHIN [Suspect]
     Indication: PRODUCT USED FOR UNKNOWN INDICATION
     Route: 042
     Dates: start: 20100107, end: 20100109
  2. TRIMETHOPRIM [Suspect]
     Indication: PRODUCT USED FOR UNKNOWN INDICATION
     Route: 042
     Dates: start: 20100107, end: 20100109

REACTIONS (4)
  - DYSPNOEA [None]
  - ANGIOEDEMA [None]
  - LOSS OF CONSCIOUSNESS [None]
  - ANAPHYLACTOID REACTION [None]
